FAERS Safety Report 7812147-8 (Version None)
Quarter: 2011Q4

REPORT INFORMATION
  Report Type: 
  Country: None (occurrence: None)
  Receive Date: 20111013
  Receipt Date: 20110120
  Transmission Date: 20120403
  Serious: Yes (Death, Hospitalization, Other)
  Sender: FDA-Public Use
  Company Number: PHHY2010FR48283

PATIENT
  Sex: Male

DRUGS (1)
  1. IMATINIB MESYLATE [Suspect]
     Indication: CHRONIC MYELOID LEUKAEMIA

REACTIONS (14)
  - GENERAL PHYSICAL HEALTH DETERIORATION [None]
  - ANAEMIA [None]
  - CARDIO-RESPIRATORY ARREST [None]
  - RESPIRATORY DISTRESS [None]
  - PYREXIA [None]
  - BLOOD UREA INCREASED [None]
  - TACHYPNOEA [None]
  - MUCOSAL DISCOLOURATION [None]
  - PLATELET COUNT DECREASED [None]
  - HAEMORRHAGE [None]
  - HAEMATURIA [None]
  - DEFORMITY THORAX [None]
  - BLOOD CREATININE INCREASED [None]
  - BONE PAIN [None]
